FAERS Safety Report 8472644 (Version 2)
Quarter: 2019Q3

REPORT INFORMATION
  Report Type: Report from Study
  Country: US (occurrence: US)
  Receive Date: 20120322
  Receipt Date: 20190910
  Transmission Date: 20191005
  Serious: Yes (Other)
  Sender: FDA-Public Use
  Company Number: US-ROCHE-1046633

PATIENT
  Sex: Female
  Weight: 99.88 kg

DRUGS (4)
  1. ISOTRETINOIN. [Suspect]
     Active Substance: ISOTRETINOIN
     Indication: FURUNCLE
     Route: 048
     Dates: start: 1997
  2. CYMBALTA [Concomitant]
     Active Substance: DULOXETINE HYDROCHLORIDE
     Indication: DEPRESSION
     Dosage: ONGOING: YES
     Route: 048
     Dates: start: 2019
  3. PERCOCET [Concomitant]
     Active Substance: ACETAMINOPHEN\OXYCODONE HYDROCHLORIDE
     Indication: NEURALGIA
     Dosage: ONGOING: YES
     Route: 048
     Dates: start: 1997
  4. GABAPENTIN. [Concomitant]
     Active Substance: GABAPENTIN
     Indication: NEURALGIA
     Dosage: 4-6 TABLETS/DAY, ONGOING: YES
     Route: 048
     Dates: start: 2016

REACTIONS (10)
  - Intervertebral disc degeneration [Unknown]
  - Neck pain [Unknown]
  - Bone pain [Not Recovered/Not Resolved]
  - Surgery [Unknown]
  - Spinal disorder [Unknown]
  - Fibromyalgia [Not Recovered/Not Resolved]
  - Neuralgia [Unknown]
  - Urinary tract infection [Recovered/Resolved]
  - Bedridden [Not Recovered/Not Resolved]
  - Muscle spasms [Not Recovered/Not Resolved]

NARRATIVE: CASE EVENT DATE: 1997
